FAERS Safety Report 4353322-7 (Version None)
Quarter: 2004Q2

REPORT INFORMATION
  Report Type: 
  Country: None (occurrence: None)
  Receive Date: 20040426
  Receipt Date: 20040408
  Transmission Date: 20050107
  Serious: Yes (Other)
  Sender: FDA-Public Use
  Company Number: 200410230BFR

PATIENT
  Sex: Male

DRUGS (3)
  1. KOGENATE [Suspect]
     Indication: FACTOR VIII DEFICIENCY
     Dosage: TIW, INTRAVENOUS
     Route: 042
  2. KOGENATE [Suspect]
     Dosage: INTRAVENOUS
     Route: 042
  3. KOGENATE [Suspect]
     Dosage: INTRAVENOUS
     Route: 042
     Dates: start: 20040415

REACTIONS (4)
  - DRUG EFFECT DECREASED [None]
  - FACTOR VIII INHIBITION [None]
  - HAEMARTHROSIS [None]
  - HAEMORRHAGE [None]
